FAERS Safety Report 6943623-8 (Version None)
Quarter: 2010Q3

REPORT INFORMATION
  Report Type: 
  Country: None (occurrence: None)
  Receive Date: 20100826
  Receipt Date: 20100812
  Transmission Date: 20110219
  Serious: Yes (Hospitalization)
  Sender: FDA-Public Use
  Company Number: PHHY2010MX53758

PATIENT
  Sex: Female

DRUGS (2)
  1. EXFORGE [Suspect]
     Indication: HYPERTENSION
     Dosage: 1 TABLET (160/5) MG PER DAY
     Route: 048
     Dates: start: 20081220
  2. METOPROLOL [Concomitant]

REACTIONS (2)
  - GALLBLADDER DISORDER [None]
  - SURGERY [None]
